FAERS Safety Report 23439270 (Version 2)
Quarter: 2024Q1

REPORT INFORMATION
  Report Type: Spontaneous
  Country: US (occurrence: US)
  Receive Date: 20240124
  Receipt Date: 20240325
  Transmission Date: 20240410
  Serious: No
  Sender: FDA-Public Use
  Company Number: US-PFIZER INC-US-GBT-020213

PATIENT
  Age: 12 Year
  Sex: Male

DRUGS (5)
  1. OXBRYTA [Suspect]
     Active Substance: VOXELOTOR
     Dosage: 900 MG, 1X/DAY
     Route: 048
     Dates: end: 20230212
  2. OXBRYTA [Suspect]
     Active Substance: VOXELOTOR
     Dosage: 1500 MG, 1X/DAY
  3. OXBRYTA [Suspect]
     Active Substance: VOXELOTOR
     Dosage: 5 TABLETS FOR ORAL SUSPENSION, ONCE DAILY, ORALLY
     Route: 048
  4. OXBRYTA [Suspect]
     Active Substance: VOXELOTOR
     Dosage: 1500 MG, DAILY  (DOSE: TAKE 5 TABS BY MOUTH EVERY DAY)
     Route: 048
     Dates: start: 20230214
  5. OXBRYTA [Suspect]
     Active Substance: VOXELOTOR
     Dosage: 1500 MG, 1X/DAY (500 TAKE 3 TABLETS BY MOUTH ONCE DAILY)
     Route: 048

REACTIONS (1)
  - Pain [Unknown]
